FAERS Safety Report 19741787 (Version 2)
Quarter: 2021Q3

REPORT INFORMATION
  Report Type: Spontaneous
  Country: US (occurrence: US)
  Receive Date: 20210824
  Receipt Date: 20210901
  Transmission Date: 20211014
  Serious: No
  Sender: FDA-Public Use
  Company Number: US-ALKERMES INC.-ALK-2021-004248

PATIENT
  Age: 31 Year
  Sex: Male
  Weight: 102.04 kg

DRUGS (3)
  1. VIVITROL [Suspect]
     Active Substance: NALTREXONE
     Indication: ALCOHOLISM
     Dosage: 380 MILLIGRAM, QMO
     Route: 065
     Dates: start: 20210812
  2. VIVITROL [Suspect]
     Active Substance: NALTREXONE
     Dosage: 380 MILLIGRAM, QMO
     Route: 030
     Dates: start: 202012, end: 202012
  3. LEXAPRO [Concomitant]
     Active Substance: ESCITALOPRAM OXALATE
     Indication: PRODUCT USED FOR UNKNOWN INDICATION
     Dosage: UNK
     Route: 065

REACTIONS (8)
  - Nervousness [Recovered/Resolved]
  - Injection site urticaria [Recovered/Resolved]
  - Drug ineffective [Not Recovered/Not Resolved]
  - Injection site reaction [Recovered/Resolved]
  - Coronavirus infection [Unknown]
  - Injection site warmth [Recovered/Resolved]
  - Product administered at inappropriate site [Recovered/Resolved]
  - Product dose omission issue [Recovered/Resolved]

NARRATIVE: CASE EVENT DATE: 202012
